FAERS Safety Report 12707906 (Version 1)
Quarter: 2016Q3

REPORT INFORMATION
  Report Type: Spontaneous
  Country: FR (occurrence: FR)
  Receive Date: 20160901
  Receipt Date: 20160901
  Transmission Date: 20161109
  Serious: Yes (Hospitalization)
  Sender: FDA-Public Use
  Company Number: FR-FRESENIUS KABI-FK201605945

PATIENT
  Age: 82 Year
  Sex: Female

DRUGS (5)
  1. PEMETREXED (MANUFACTURER UNKNOWN) [Interacting]
     Active Substance: PEMETREXED
     Indication: NON-SMALL CELL LUNG CANCER
     Route: 065
     Dates: start: 20141209
  2. CARBOPLATIN (MANUFACTURER UNKNOWN) [Suspect]
     Active Substance: CARBOPLATIN
     Indication: NON-SMALL CELL LUNG CANCER
     Route: 065
     Dates: start: 20141209
  3. ERLOTINIB [Interacting]
     Active Substance: ERLOTINIB
     Indication: NON-SMALL CELL LUNG CANCER
     Dates: start: 201402, end: 20141226
  4. ERLOTINIB [Interacting]
     Active Substance: ERLOTINIB
     Dates: start: 20141221
  5. ERLOTINIB [Interacting]
     Active Substance: ERLOTINIB
     Dates: start: 20150104

REACTIONS (4)
  - Asthenia [Recovered/Resolved]
  - Drug interaction [Recovered/Resolved]
  - Diarrhoea [Recovered/Resolved]
  - Gastrointestinal toxicity [None]
